FAERS Safety Report 12651958 (Version 2)
Quarter: 2016Q3

REPORT INFORMATION
  Report Type: Spontaneous
  Country: US (occurrence: US)
  Receive Date: 20160815
  Receipt Date: 20160829
  Transmission Date: 20161109
  Serious: Yes (Death, Hospitalization)
  Sender: FDA-Public Use
  Company Number: US-ACTELION-A-NJ2016-140412

PATIENT
  Age: 55 Year
  Sex: Female

DRUGS (10)
  1. CELEXA [Concomitant]
     Active Substance: CITALOPRAM HYDROBROMIDE
     Dosage: 20 MG, UNK
     Dates: start: 201503
  2. SILDENAFIL. [Concomitant]
     Active Substance: SILDENAFIL
     Indication: PULMONARY ARTERIAL HYPERTENSION
     Dosage: 20 MG, TID
     Dates: start: 201408
  3. VELETRI [Suspect]
     Active Substance: EPOPROSTENOL
     Indication: PULMONARY HYPERTENSION
     Dosage: 13.5 NG/KG, PER MIN
     Route: 042
     Dates: start: 20160314
  4. NORCO [Concomitant]
     Active Substance: ACETAMINOPHEN\HYDROCODONE BITARTRATE
     Dosage: UNK, Q6H, PRN
     Dates: start: 200502
  5. DEMADEX [Concomitant]
     Active Substance: TORSEMIDE
     Dosage: 100 MG, UNK
     Dates: start: 201606
  6. CHERATUSSIN [Concomitant]
     Active Substance: AMMONIUM CHLORIDE\DEXTROMETHORPHAN\SODIUM CITRATE
     Dosage: 10 MG, Q4H, PRN
     Dates: start: 20160621
  7. BENADRYL [Concomitant]
     Active Substance: DIPHENHYDRAMINE HYDROCHLORIDE
     Dosage: 25-50 MG, Q4-6H
     Dates: start: 201606
  8. SPIRONOLACTONE. [Concomitant]
     Active Substance: SPIRONOLACTONE
     Dosage: UNK
     Dates: start: 201405
  9. DILAUDID [Concomitant]
     Active Substance: HYDROMORPHONE HYDROCHLORIDE
     Dosage: 2 MG, Q8H, PRN
     Dates: start: 201603
  10. POTASSIUM [Concomitant]
     Active Substance: POTASSIUM
     Dosage: 10 MEQ, UNK

REACTIONS (5)
  - Death [Fatal]
  - Right ventricular failure [Unknown]
  - Pulmonary embolism [Fatal]
  - Venous pressure jugular increased [Unknown]
  - Cardiorenal syndrome [Unknown]

NARRATIVE: CASE EVENT DATE: 20160730
